FAERS Safety Report 18067372 (Version 8)
Quarter: 2022Q1

REPORT INFORMATION
  Report Type: Other
  Country: IT (occurrence: None)
  Receive Date: 20200724
  Receipt Date: 20220324
  Transmission Date: 20220423
  Serious: Yes (Other)
  Sender: FDA-Public Use
  Company Number: IT-ROCHE-2646589

PATIENT
  Age: 36 Year
  Sex: Female

DRUGS (28)
  1. OCRELIZUMAB [Suspect]
     Active Substance: OCRELIZUMAB
     Indication: Multiple sclerosis
     Dosage: 300 MG/250 ML
     Route: 042
     Dates: start: 20190905, end: 20190905
  2. OCRELIZUMAB [Suspect]
     Active Substance: OCRELIZUMAB
     Dosage: 300 MG/250 ML
     Route: 042
     Dates: start: 20190923, end: 20190923
  3. OCRELIZUMAB [Suspect]
     Active Substance: OCRELIZUMAB
     Dosage: 600 MG/500 ML
     Route: 042
     Dates: start: 20200708, end: 20200708
  4. OCRELIZUMAB [Suspect]
     Active Substance: OCRELIZUMAB
     Dosage: 600 MG/500 ML
     Route: 042
     Dates: start: 20210119, end: 20210119
  5. CINNARIZINE [Concomitant]
     Active Substance: CINNARIZINE
     Indication: Headache
     Route: 048
     Dates: start: 20181208, end: 20191216
  6. CINNARIZINE [Concomitant]
     Active Substance: CINNARIZINE
     Route: 048
     Dates: start: 20191216, end: 20200912
  7. PREGABALIN [Concomitant]
     Active Substance: PREGABALIN
     Route: 048
     Dates: start: 20181208, end: 20211013
  8. PREGABALIN [Concomitant]
     Active Substance: PREGABALIN
     Route: 048
     Dates: start: 20211013
  9. VENLAFAXINE [Concomitant]
     Active Substance: VENLAFAXINE HYDROCHLORIDE
     Indication: Headache
     Route: 048
     Dates: start: 20191216, end: 20211013
  10. ELETRIPTAN HYDROBROMIDE [Concomitant]
     Active Substance: ELETRIPTAN HYDROBROMIDE
     Indication: Headache
     Route: 048
     Dates: start: 20200131, end: 20201012
  11. METHYLPREDNISOLONE [Concomitant]
     Active Substance: METHYLPREDNISOLONE
     Indication: Multiple sclerosis
     Route: 042
     Dates: start: 20200131, end: 20200202
  12. METHYLPREDNISOLONE [Concomitant]
     Active Substance: METHYLPREDNISOLONE
     Route: 048
     Dates: start: 20200203, end: 20200204
  13. SOLU-MEDROL [Concomitant]
     Active Substance: METHYLPREDNISOLONE SODIUM SUCCINATE
     Indication: Premedication
     Route: 042
     Dates: start: 20190905, end: 20190905
  14. SOLU-MEDROL [Concomitant]
     Active Substance: METHYLPREDNISOLONE SODIUM SUCCINATE
     Route: 042
     Dates: start: 20190923, end: 20190923
  15. SOLU-MEDROL [Concomitant]
     Active Substance: METHYLPREDNISOLONE SODIUM SUCCINATE
     Dosage: DATE OF TREATMENT: 19/JAN/2021, 12/JUL/2021
     Route: 042
     Dates: start: 20200708, end: 20200708
  16. SOLU-MEDROL [Concomitant]
     Active Substance: METHYLPREDNISOLONE SODIUM SUCCINATE
     Dosage: FREQUENCY: ONCE BEFORE INFUSION
     Route: 042
     Dates: start: 20220126, end: 20220126
  17. ZANTAC [Concomitant]
     Active Substance: RANITIDINE HYDROCHLORIDE
     Indication: Premedication
     Route: 042
     Dates: start: 20190905, end: 20190905
  18. ZANTAC [Concomitant]
     Active Substance: RANITIDINE HYDROCHLORIDE
     Route: 042
     Dates: start: 20190923, end: 20190923
  19. ACETAMINOPHEN [Concomitant]
     Active Substance: ACETAMINOPHEN
     Indication: Premedication
     Dosage: DATE OF TREATMENT: 23/SEP/2019, 08/JUL/2020, 19/JAN/2021, 12/JUL/2021
     Route: 042
     Dates: start: 20190905, end: 20190905
  20. ACETAMINOPHEN [Concomitant]
     Active Substance: ACETAMINOPHEN
     Dosage: FREQUENCY: ONCE BEFORE INFUSION
     Route: 042
     Dates: start: 20220126, end: 20220126
  21. PANTOPRAZOLE SODIUM [Concomitant]
     Active Substance: PANTOPRAZOLE SODIUM
     Indication: Premedication
     Route: 042
     Dates: start: 20200708, end: 20200708
  22. TRIMETON [Concomitant]
     Active Substance: CHLORPHENIRAMINE MALEATE
     Indication: Premedication
     Dosage: DATE OF TREATMENT: 19/JAN/2021, 12/JUL/2021
     Route: 042
     Dates: start: 20200708, end: 20200708
  23. TRIMETON [Concomitant]
     Active Substance: CHLORPHENIRAMINE MALEATE
     Dosage: FREQUENCY: ONCE BEFORE INFUSION
     Route: 042
  24. AMITRIPTYLINE HYDROCHLORIDE\CHLORDIAZEPOXIDE HYDROCHLORIDE [Concomitant]
     Active Substance: AMITRIPTYLINE HYDROCHLORIDE\CHLORDIAZEPOXIDE HYDROCHLORIDE
     Dosage: 1 UNIT
     Route: 048
     Dates: start: 20201012
  25. INDOMETHACIN [Concomitant]
     Active Substance: INDOMETHACIN
     Dosage: 1 CAPSULE
     Route: 048
     Dates: start: 20201012, end: 20211013
  26. RELPAX [Concomitant]
     Active Substance: ELETRIPTAN HYDROBROMIDE
     Dosage: 1 OTHER
     Dates: start: 20210701, end: 20211013
  27. MODERNA COVID-19 VACCINE [Concomitant]
     Active Substance: ELASOMERAN
     Dosage: 1 U?NEXT DOSE ON 10/MAY/2021
     Route: 030
     Dates: start: 20210412, end: 20210412
  28. MODERNA COVID-19 VACCINE [Concomitant]
     Active Substance: ELASOMERAN
     Dosage: 3RD DOSE
     Route: 030
     Dates: start: 20211110, end: 20211110

REACTIONS (2)
  - Escherichia infection [Recovered/Resolved]
  - C-reactive protein increased [Not Recovered/Not Resolved]

NARRATIVE: CASE EVENT DATE: 20200423
